FAERS Safety Report 5793519-2 (Version None)
Quarter: 2008Q2

REPORT INFORMATION
  Report Type: 
  Country: None (occurrence: None)
  Receive Date: 20080627
  Receipt Date: 20080618
  Transmission Date: 20081010
  Serious: Yes (Death, Hospitalization)
  Sender: FDA-Public Use
  Company Number: TH-JNJFOC-20080300020

PATIENT
  Age: 35 Year
  Sex: Male

DRUGS (3)
  1. ULTRACET [Suspect]
     Indication: ANALGESIA
     Route: 048
  2. PARECOXIB SODIUM [Suspect]
     Indication: ANALGESIA
     Route: 030
  3. ARCOXIA [Suspect]
     Indication: ANALGESIA
     Route: 065

REACTIONS (4)
  - CARDIAC FAILURE [None]
  - CONVULSION [None]
  - EPISTAXIS [None]
  - MOUTH HAEMORRHAGE [None]
